FAERS Safety Report 21144450 (Version 3)
Quarter: 2022Q3

REPORT INFORMATION
  Report Type: Report from Study
  Country: IL (occurrence: IL)
  Receive Date: 20220728
  Receipt Date: 20220929
  Transmission Date: 20221027
  Serious: No
  Sender: FDA-Public Use
  Company Number: IL-BIOGEN-2022BI01141277

PATIENT
  Age: 72 Year
  Sex: Female
  Weight: 78 kg

DRUGS (9)
  1. ADUCANUMAB [Suspect]
     Active Substance: ADUCANUMAB
     Indication: Dementia Alzheimer^s type
     Dosage: 1ST INFUSION
     Route: 050
     Dates: start: 20220113
  2. ADUCANUMAB [Suspect]
     Active Substance: ADUCANUMAB
     Dosage: 2ND INFUSION
     Route: 050
     Dates: start: 20220210
  3. ADUCANUMAB [Suspect]
     Active Substance: ADUCANUMAB
     Dosage: 3RD INFUSION
     Route: 050
     Dates: start: 20220310
  4. ADUCANUMAB [Suspect]
     Active Substance: ADUCANUMAB
     Dosage: 4TH INFUSION
     Route: 050
     Dates: start: 20220407
  5. ADUCANUMAB [Suspect]
     Active Substance: ADUCANUMAB
     Dosage: 5TH INFUSION
     Route: 050
     Dates: start: 20220512
  6. ADUCANUMAB [Suspect]
     Active Substance: ADUCANUMAB
     Dosage: 6TH INFUSION
     Route: 050
     Dates: start: 20220609, end: 20220804
  7. EXELON PATCH [Concomitant]
     Active Substance: RIVASTIGMINE
     Indication: Product used for unknown indication
     Route: 050
  8. LEVOTHYROXINE [Concomitant]
     Active Substance: LEVOTHYROXINE
     Indication: Product used for unknown indication
     Route: 050
  9. MEMOX [Concomitant]
     Indication: Product used for unknown indication
     Route: 050

REACTIONS (1)
  - Amyloid related imaging abnormality-microhaemorrhages and haemosiderin deposits [Recovered/Resolved]

NARRATIVE: CASE EVENT DATE: 20220707
